FAERS Safety Report 5072864-2 (Version None)
Quarter: 2006Q3

REPORT INFORMATION
  Report Type: 
  Country: None (occurrence: None)
  Receive Date: 20060802
  Receipt Date: 20060720
  Transmission Date: 20061208
  Serious: Yes (Hospitalization)
  Sender: FDA-Public Use
  Company Number: THQ2002A01382

PATIENT
  Age: 64 Year
  Sex: Female

DRUGS (5)
  1. LANSOPRAZOLE [Suspect]
     Indication: DYSPEPSIA
     Dosage: 60 MG PER ORAL
     Route: 048
     Dates: start: 20020201, end: 20020701
  2. AMOXICILLIN [Suspect]
     Indication: DYSPEPSIA
     Dates: start: 20020715, end: 20020722
  3. CLARITHROMYCIN [Suspect]
     Indication: DYSPEPSIA
     Dosage: 1000 MG PER ORAL
     Route: 048
     Dates: start: 20020715, end: 20050722
  4. METHOTREXATE [Suspect]
  5. MODURETIC 5-50 [Concomitant]

REACTIONS (3)
  - DRUG HYPERSENSITIVITY [None]
  - ERYTHEMA MULTIFORME [None]
  - INFECTION [None]
